FAERS Safety Report 4727632-5 (Version None)
Quarter: 2005Q3

REPORT INFORMATION
  Report Type: 
  Country: None (occurrence: None)
  Receive Date: 20050727
  Receipt Date: 20050727
  Transmission Date: 20060218
  Serious: Yes (Hospitalization)
  Sender: FDA-Public Use
  Company Number: None

PATIENT
  Age: 66 Year
  Sex: Male

DRUGS (15)
  1. THEOPHYLLINE [Suspect]
     Indication: CHRONIC OBSTRUCTIVE PULMONARY DISEASE
     Dosage: 200MG PO BID
     Route: 048
     Dates: start: 20010409, end: 20050613
  2. PREDNISONE [Concomitant]
  3. ADVAIR DISKUS 100/50 [Concomitant]
  4. ALBUTEROL [Concomitant]
  5. ATROVENT [Concomitant]
  6. RANITIDINE [Concomitant]
  7. LASIX [Concomitant]
  8. ZOCOR [Concomitant]
  9. CALCIUM CARBONATE [Concomitant]
  10. GLUCOPHAGE [Concomitant]
  11. ELAVIL [Concomitant]
  12. FOSSAMAX [Concomitant]
  13. ALLEGRA [Concomitant]
  14. SPIRIVA [Concomitant]
  15. THEOPHYLLINE [Concomitant]

REACTIONS (2)
  - DRUG LEVEL DECREASED [None]
  - VOMITING [None]
